FAERS Safety Report 4939574-0 (Version None)
Quarter: 2006Q1

REPORT INFORMATION
  Report Type: 
  Country: None (occurrence: None)
  Receive Date: 20060310
  Receipt Date: 20060227
  Transmission Date: 20060701
  Serious: Yes (Hospitalization)
  Sender: FDA-Public Use
  Company Number: 2006PK00443

PATIENT
  Age: 24234 Day
  Sex: Female
  Weight: 53 kg

DRUGS (7)
  1. ARIMIDEX [Suspect]
     Indication: BREAST CANCER
     Route: 048
     Dates: start: 20050415, end: 20060214
  2. ASPIRIN [Suspect]
     Indication: CEREBROVASCULAR ACCIDENT
     Route: 048
     Dates: start: 19950101
  3. TRASTUZUMAB [Suspect]
     Indication: BREAST CANCER
     Dates: start: 20050531, end: 20051129
  4. NAVELBINE [Concomitant]
     Indication: BREAST CANCER
     Dates: start: 20050920, end: 20051108
  5. RADIOTHERAPY [Concomitant]
     Indication: LYMPHADENOPATHY
     Dosage: 54 GY
     Dates: start: 20051214, end: 20060123
  6. MONURIL [Concomitant]
     Indication: URINARY TRACT INFECTION
     Dates: start: 20051108
  7. DEROXAT [Concomitant]
     Indication: DEPRESSION
     Route: 048
     Dates: start: 20051215, end: 20060120

REACTIONS (1)
  - HENOCH-SCHONLEIN PURPURA [None]
